FAERS Safety Report 25470904 (Version 2)
Quarter: 2025Q3

REPORT INFORMATION
  Report Type: Spontaneous
  Country: CN (occurrence: CN)
  Receive Date: 20250624
  Receipt Date: 20250703
  Transmission Date: 20251021
  Serious: Yes (Life-Threatening, Hospitalization, Other)
  Sender: ALKEM
  Company Number: None

PATIENT
  Age: 73 Year
  Sex: Male

DRUGS (5)
  1. TACROLIMUS [Suspect]
     Active Substance: TACROLIMUS
     Indication: Glomerulonephritis membranous
     Route: 065
  2. METHYLPREDNISOLONE [Suspect]
     Active Substance: METHYLPREDNISOLONE
     Indication: Glomerulonephritis membranous
     Route: 065
  3. METHYLPREDNISOLONE [Suspect]
     Active Substance: METHYLPREDNISOLONE
     Dosage: 24 MILLIGRAM, QD (TABLET)
     Route: 065
     Dates: end: 20230331
  4. METHYLPREDNISOLONE [Suspect]
     Active Substance: METHYLPREDNISOLONE
     Dosage: 16 MILLIGRAM, QD (TABLET)
     Route: 065
     Dates: end: 20230411
  5. METHYLPREDNISOLONE [Suspect]
     Active Substance: METHYLPREDNISOLONE
     Dosage: 12 MILLIGRAM, QD (TABLET)
     Route: 065
     Dates: end: 20230413

REACTIONS (15)
  - Bronchiectasis [Recovered/Resolved]
  - Respiratory failure [Recovered/Resolved]
  - Hepatic function abnormal [Unknown]
  - Renal impairment [Unknown]
  - Corynebacterium infection [Recovered/Resolved]
  - Pneumonia bacterial [Recovered/Resolved]
  - Bronchopulmonary aspergillosis [Recovered/Resolved]
  - Atypical mycobacterial pneumonia [Recovered/Resolved]
  - Pneumonia cytomegaloviral [Recovered/Resolved]
  - Pneumonia klebsiella [Recovered/Resolved]
  - Pneumocystis jirovecii pneumonia [Recovered/Resolved]
  - Pulmonary nocardiosis [Recovered/Resolved]
  - Candida pneumonia [Recovered/Resolved]
  - Infection [Recovered/Resolved]
  - Systemic infection [Recovered/Resolved]

NARRATIVE: CASE EVENT DATE: 20230301
